FAERS Safety Report 7626170-X (Version None)
Quarter: 2011Q3

REPORT INFORMATION
  Report Type: 
  Country: None (occurrence: None)
  Receive Date: 20110721
  Receipt Date: 20110710
  Transmission Date: 20111222
  Serious: Yes (Other)
  Sender: FDA-Public Use
  Company Number: PHHY2011RU61343

PATIENT
  Age: 69 Year
  Sex: Female

DRUGS (1)
  1. ZOLEDRONOC ACID [Suspect]
     Indication: OSTEOPOROSIS
     Route: 042
     Dates: start: 20090201

REACTIONS (5)
  - ARTHRITIS REACTIVE [None]
  - ARTHRITIS ALLERGIC [None]
  - SWELLING [None]
  - ARTHRALGIA [None]
  - ARTHROPATHY [None]
